FAERS Safety Report 6038388-0 (Version None)
Quarter: 2009Q1

REPORT INFORMATION
  Report Type: 
  Country: None (occurrence: None)
  Receive Date: 20090115
  Receipt Date: 20090107
  Transmission Date: 20090719
  Serious: Yes (Death, Hospitalization, Other)
  Sender: FDA-Public Use
  Company Number: US-BAXTER-2009BH000265

PATIENT
  Age: 80 Year
  Sex: Male

DRUGS (4)
  1. HEPARIN SODIUM INJECTION [Suspect]
     Indication: PROPHYLAXIS
     Route: 042
     Dates: start: 20071215, end: 20080225
  2. ADVAIR DISKUS 100/50 [Concomitant]
     Indication: DRUG USE FOR UNKNOWN INDICATION
     Route: 065
  3. ALBUTEROL [Concomitant]
     Indication: DRUG USE FOR UNKNOWN INDICATION
     Route: 065
  4. COMBIVENT [Concomitant]
     Indication: DRUG USE FOR UNKNOWN INDICATION
     Route: 065

REACTIONS (14)
  - ABDOMINAL DISTENSION [None]
  - ANAPHYLACTIC SHOCK [None]
  - ASPIRATION [None]
  - BACK PAIN [None]
  - CIRCULATORY COLLAPSE [None]
  - COAGULOPATHY [None]
  - GALLBLADDER DISORDER [None]
  - INFECTION [None]
  - ORGAN FAILURE [None]
  - PHARYNGEAL OEDEMA [None]
  - PYREXIA [None]
  - RETROPERITONEAL HAEMORRHAGE [None]
  - SKIN NECROSIS [None]
  - VOMITING [None]
